FAERS Safety Report 6736957-3 (Version None)
Quarter: 2010Q2

REPORT INFORMATION
  Report Type: 
  Country: None (occurrence: None)
  Receive Date: 20100523
  Receipt Date: 20100518
  Transmission Date: 20101027
  Serious: Yes (Other)
  Sender: FDA-Public Use
  Company Number: US-JNJFOC-20100502001

PATIENT
  Age: 9 Year
  Sex: Male

DRUGS (8)
  1. CHILDREN'S TYLENOL SUSPENSION [Suspect]
  2. CHILDREN'S TYLENOL SUSPENSION [Suspect]
     Indication: MIGRAINE
  3. CHILDREN'S MOTRIN [Suspect]
  4. CHILDREN'S MOTRIN [Suspect]
     Indication: MIGRAINE
  5. CHILDREN'S MOTRIN [Suspect]
  6. CHILDREN'S MOTRIN [Suspect]
     Indication: MIGRAINE
  7. CHILDREN'S TYLENOL PLUS MULTI-SYMPTOM COLD [Suspect]
     Indication: DRUG USE FOR UNKNOWN INDICATION
  8. BENADRYL [Suspect]
     Indication: DRUG USE FOR UNKNOWN INDICATION

REACTIONS (3)
  - ABDOMINAL PAIN UPPER [None]
  - HAEMATOCHEZIA [None]
  - LIQUID PRODUCT PHYSICAL ISSUE [None]
